FAERS Safety Report 12561752 (Version 2)
Quarter: 2016Q3

REPORT INFORMATION
  Report Type: Spontaneous
  Country: FR (occurrence: FR)
  Receive Date: 20160715
  Receipt Date: 20160722
  Transmission Date: 20161109
  Serious: No
  Sender: FDA-Public Use
  Company Number: FR-ASTRAZENECA-2016SE76082

PATIENT
  Sex: Female

DRUGS (3)
  1. PHYSIOTENS [Concomitant]
     Active Substance: MOXONIDINE
     Indication: HYPERTENSION
     Dosage: 0.2MG UNKNOWN
  2. PARACETAMOL [Concomitant]
     Active Substance: ACETAMINOPHEN
  3. CRESTOR [Suspect]
     Active Substance: ROSUVASTATIN CALCIUM
     Indication: HYPERCHOLESTEROLAEMIA
     Route: 048

REACTIONS (4)
  - Abdominal pain [Recovered/Resolved]
  - Dyspepsia [Recovered/Resolved]
  - Oral discomfort [Recovered/Resolved]
  - Nausea [Recovered/Resolved]
